FAERS Safety Report 9091655 (Version 2)
Quarter: 2013Q2

REPORT INFORMATION
  Report Type: Spontaneous
  Country: DE (occurrence: DE)
  Receive Date: 20130201
  Receipt Date: 20130424
  Transmission Date: 20140414
  Serious: Yes (Hospitalization, Other)
  Sender: FDA-Public Use
  Company Number: DE-BAYER-2013-012593

PATIENT
  Age: 44 Year
  Sex: Female
  Weight: 87 kg

DRUGS (3)
  1. MIRENA [Suspect]
     Indication: CONTRACEPTION
     Dosage: 20 MCG/24HR, CONT
     Route: 015
     Dates: start: 20020206
  2. MIRENA [Suspect]
     Indication: CONTRACEPTION
     Route: 015
  3. MIRENA [Suspect]
     Indication: CONTRACEPTION
     Route: 015

REACTIONS (15)
  - Fibromyalgia [None]
  - Blindness unilateral [None]
  - Muscle tightness [None]
  - Tenderness [None]
  - Pain [None]
  - Initial insomnia [None]
  - Tension headache [None]
  - Arthritis [None]
  - Musculoskeletal pain [None]
  - Joint range of motion decreased [None]
  - Arthralgia [None]
  - Weight increased [None]
  - Depression [None]
  - Arthropathy [None]
  - Mobility decreased [None]
